FAERS Safety Report 7623487-X (Version None)
Quarter: 2011Q3

REPORT INFORMATION
  Report Type: 
  Country: None (occurrence: None)
  Receive Date: 20110720
  Receipt Date: 20110714
  Transmission Date: 20111222
  Serious: Yes (Death)
  Sender: FDA-Public Use
  Company Number: GXKR2010NO11856

PATIENT
  Age: 58 Year
  Sex: Female

DRUGS (7)
  1. METFORMIN HCL [Concomitant]
     Route: 065
  2. INSULIN [Concomitant]
     Dosage: RAPID AND SLOW ACTING
     Route: 065
  3. BENDROFLUMETHIAZIDE [Concomitant]
     Route: 065
  4. AMITRIPTYLINE HCL [Suspect]
     Dosage: 25 MG, BID
     Route: 065
  5. ACETYLSALICYLIC ACID SRT [Concomitant]
     Route: 064
  6. CITALOPRAM HYDROBROMIDE [Suspect]
     Dosage: 20 MG, QD
     Route: 065
  7. SIMVASTATIN [Concomitant]
     Route: 065

REACTIONS (11)
  - COMA [None]
  - ATAXIA [None]
  - APRAXIA [None]
  - RHABDOMYOLYSIS [None]
  - MUSCLE TWITCHING [None]
  - NYSTAGMUS [None]
  - SEROTONIN SYNDROME [None]
  - CONFUSIONAL STATE [None]
  - DISSEMINATED INTRAVASCULAR COAGULATION [None]
  - DIZZINESS [None]
  - MULTI-ORGAN FAILURE [None]
